FAERS Safety Report 8740265 (Version 2)
Quarter: 2013Q4

REPORT INFORMATION
  Report Type: Spontaneous
  Country: FR (occurrence: FR)
  Receive Date: 20120823
  Receipt Date: 20131105
  Transmission Date: 20140711
  Serious: Yes (Disabling)
  Sender: FDA-Public Use
  Company Number: FR-009507513-1208FRA008329

PATIENT
  Age: 63 Year
  Sex: Male
  Weight: 82 kg

DRUGS (11)
  1. TIENAM 500MG/500MG, POUDRE POUR PERFUSION [Suspect]
     Indication: PSEUDOMONAS INFECTION
     Dosage: 1 G, TID
     Route: 042
     Dates: start: 20111116, end: 20111129
  2. AMIKACIN [Suspect]
     Indication: PSEUDOMONAS INFECTION
     Dosage: 1.2 G, QD
     Route: 042
     Dates: start: 20111116, end: 20111116
  3. AMIKACIN [Suspect]
     Dosage: 2 G, QD
     Route: 042
     Dates: start: 20111117, end: 20111120
  4. AMIKACIN [Suspect]
     Dosage: 2.5 G, QD
     Route: 042
     Dates: start: 20111121, end: 20111127
  5. AMIKACIN [Suspect]
     Dosage: 2 G, QD
     Route: 042
     Dates: start: 20111128, end: 20111201
  6. AMIKACIN [Suspect]
     Dosage: 2.5 G, QD
     Route: 042
     Dates: start: 20111201, end: 20111229
  7. PARIET [Concomitant]
     Route: 048
  8. DOLIPRANE [Concomitant]
     Route: 048
  9. ACUPAN [Concomitant]
     Route: 048
  10. TEMESTA [Concomitant]
     Route: 048
  11. FORLAX [Concomitant]
     Route: 048

REACTIONS (1)
  - Hypoacusis [Not Recovered/Not Resolved]
